FAERS Safety Report 14873321 (Version 2)
Quarter: 2018Q4

REPORT INFORMATION
  Report Type: Spontaneous
  Country: US (occurrence: US)
  Receive Date: 20180510
  Receipt Date: 20181008
  Transmission Date: 20190204
  Serious: Yes (Hospitalization, Disabling)
  Sender: FDA-Public Use
  Company Number: US-PFIZER INC-2018190959

PATIENT
  Age: 54 Year
  Sex: Female

DRUGS (1)
  1. XELJANZ XR [Suspect]
     Active Substance: TOFACITINIB CITRATE
     Indication: PSORIATIC ARTHROPATHY
     Dosage: 11 MG, UNK

REACTIONS (6)
  - Drug ineffective [Unknown]
  - Condition aggravated [Unknown]
  - Lung disorder [Unknown]
  - Pneumonia [Unknown]
  - Pyrexia [Unknown]
  - Immune system disorder [Unknown]

NARRATIVE: CASE EVENT DATE: 20180307
